FAERS Safety Report 18480311 (Version 1)
Quarter: 2020Q4

REPORT INFORMATION
  Report Type: Report from Study
  Country: US (occurrence: US)
  Receive Date: 20201109
  Receipt Date: 20201109
  Transmission Date: 20210114
  Serious: Yes (Other)
  Sender: FDA-Public Use
  Company Number: US-BIOGEN-2015BI015008

PATIENT
  Age: 32 Year
  Sex: Male

DRUGS (2)
  1. TYSABRI [Suspect]
     Active Substance: NATALIZUMAB
     Dosage: INFUSED FOR OVER 1 HOUR
     Route: 042
     Dates: start: 20150116
  2. TYSABRI [Suspect]
     Active Substance: NATALIZUMAB
     Indication: COLITIS ULCERATIVE
     Dosage: INFUSED FOR OVER 1 HOUR
     Route: 042
     Dates: start: 20130130, end: 20140516

REACTIONS (2)
  - Coeliac disease [Not Recovered/Not Resolved]
  - Colitis ulcerative [Not Recovered/Not Resolved]

NARRATIVE: CASE EVENT DATE: 20130130
